FAERS Safety Report 8185612-4 (Version None)
Quarter: 2012Q1

REPORT INFORMATION
  Report Type: 
  Country: None (occurrence: None)
  Receive Date: 20120305
  Receipt Date: 20120228
  Transmission Date: 20120608
  Serious: Yes (Death, Hospitalization)
  Sender: FDA-Public Use
  Company Number: US-CELGENEUS-163-50794-12013025

PATIENT
  Age: 73 Year
  Sex: Female
  Weight: 53.6 kg

DRUGS (29)
  1. MORPHINE [Concomitant]
     Indication: PAIN
     Dosage: 15 MILLIGRAM
     Route: 048
  2. PHYTONADIONE [Concomitant]
     Dosage: 5 MILLIGRAM
     Route: 048
     Dates: start: 20120127
  3. DIPHENHYDRAMINE HCL [Concomitant]
     Dosage: 25 MILLIGRAM
     Route: 048
     Dates: start: 20120127
  4. ZOFRAN [Concomitant]
     Indication: NAUSEA
     Dosage: 8 MILLIGRAM
     Route: 060
  5. CIPROFLOXACIN [Concomitant]
     Indication: INFECTION PROPHYLAXIS
     Dosage: 500 MILLIGRAM
     Route: 048
  6. MORPHINE [Concomitant]
  7. NYSTATIN [Concomitant]
     Dosage: 500000 UNITS
     Route: 048
     Dates: start: 20120127, end: 20120129
  8. ATENOLOL [Concomitant]
     Indication: HYPERTENSION
     Dosage: 100 MILLIGRAM
     Route: 048
  9. AMOXICILLIN [Concomitant]
     Indication: INFECTION PROPHYLAXIS
     Dosage: 500 MILLIGRAM
     Route: 048
     Dates: start: 20120127, end: 20120129
  10. ONDANSETRON [Concomitant]
     Indication: PREMEDICATION
     Route: 048
     Dates: start: 20120123
  11. ONDANSETRON [Concomitant]
     Indication: NAUSEA
     Dosage: 8 MILLIGRAM
     Route: 041
     Dates: start: 20120123
  12. ATIVAN [Concomitant]
     Indication: NAUSEA
     Dosage: .5 MILLIGRAM
     Route: 048
  13. PLATELETS [Concomitant]
     Route: 041
     Dates: start: 20120127, end: 20120128
  14. ONDANSETRON [Concomitant]
     Route: 065
     Dates: start: 20120128
  15. MAGNESIUM SULFATE [Concomitant]
     Dosage: 2 GRAM
     Route: 041
     Dates: start: 20120128, end: 20120128
  16. SODIUM CHLORIDE [Concomitant]
     Dosage: 1000 MILLILITER
     Route: 041
     Dates: start: 20120127, end: 20120129
  17. ACYCLOVIR [Concomitant]
     Indication: PROPHYLAXIS
     Dosage: 800 MILLIGRAM
     Route: 048
  18. HYDRALAZINE HCL [Concomitant]
     Indication: HYPERTENSION
     Dosage: 25 MILLIGRAM
     Route: 048
     Dates: start: 20120127, end: 20120129
  19. ATIVAN [Concomitant]
     Indication: ANXIETY
  20. PRIVIGEN [Concomitant]
     Dosage: 20 GRAM
     Route: 041
     Dates: start: 20120127
  21. ACETAMINOPHEN [Concomitant]
     Dosage: 650 MILLIGRAM
     Route: 048
     Dates: start: 20120127
  22. ENTINOSTAT [Suspect]
     Dosage: 8 MILLIGRAM
     Route: 048
     Dates: start: 20120125, end: 20120127
  23. HYDROXYUREA [Concomitant]
     Route: 065
     Dates: end: 20120122
  24. FLUCONAZOLE [Concomitant]
     Indication: PROPHYLAXIS
     Dosage: 400 MILLIGRAM
     Route: 048
     Dates: start: 20120128
  25. COMPAZINE [Concomitant]
     Indication: NAUSEA
     Dosage: 5 MILLIGRAM
     Route: 048
     Dates: start: 20120123
  26. VIDAZA [Suspect]
     Dosage: 84.5 MILLIGRAM
     Route: 041
     Dates: start: 20120123, end: 20120126
  27. ELECTROLYTE REPLACEMENT [Concomitant]
     Route: 041
  28. IMMUNE GLOBULIN INTRAVENOUS (HUMAN) [Concomitant]
     Dosage: .4 MILLIGRAM
     Route: 041
  29. NORFLOXACIN [Concomitant]
     Dosage: 400 MILLIGRAM
     Route: 048
     Dates: start: 20120127, end: 20120129

REACTIONS (4)
  - ACUTE MYELOID LEUKAEMIA [None]
  - HYPONATRAEMIA [None]
  - HYPOKALAEMIA [None]
  - LETHARGY [None]
